FAERS Safety Report 11805464 (Version 1)
Quarter: 2015Q4

REPORT INFORMATION
  Report Type: Spontaneous
  Country: US (occurrence: None)
  Receive Date: 20151204
  Receipt Date: 20151204
  Transmission Date: 20160305
  Serious: Yes (Disabling, Other)
  Sender: FDA-Public Use
  Company Number: None

PATIENT
  Age: 39 Year
  Sex: Female
  Weight: 68.04 kg

DRUGS (9)
  1. CIPRO [Suspect]
     Active Substance: CIPROFLOXACIN HYDROCHLORIDE
     Indication: INFECTION
  2. ALEVE [Concomitant]
     Active Substance: NAPROXEN SODIUM
  3. BENADRYL [Concomitant]
     Active Substance: DIPHENHYDRAMINE HYDROCHLORIDE
  4. VITAMIN B [Concomitant]
     Active Substance: VITAMIN B
  5. ADVIL [Concomitant]
     Active Substance: IBUPROFEN
  6. TYLENOL [Concomitant]
     Active Substance: ACETAMINOPHEN
  7. FLONASE [Concomitant]
     Active Substance: FLUTICASONE PROPIONATE
  8. PROBIOTIC [Concomitant]
     Active Substance: PROBIOTICS NOS
  9. AIR NASAL SPRAY [Concomitant]

REACTIONS (9)
  - Vertigo [None]
  - Diarrhoea [None]
  - Fatigue [None]
  - Feeling abnormal [None]
  - Bone pain [None]
  - Neck pain [None]
  - Abdominal pain [None]
  - Nausea [None]
  - Headache [None]

NARRATIVE: CASE EVENT DATE: 20150914
